FAERS Safety Report 26108552 (Version 2)
Quarter: 2025Q4

REPORT INFORMATION
  Report Type: Spontaneous
  Country: US (occurrence: US)
  Receive Date: 20251201
  Receipt Date: 20251222
  Transmission Date: 20260117
  Serious: No
  Sender: CIPLA
  Company Number: US-CIPLA LTD.-2025US14771

PATIENT

DRUGS (3)
  1. ALBUTEROL [Suspect]
     Active Substance: ALBUTEROL
     Indication: Product used for unknown indication
     Dosage: 180 MICROGRAM (TWO PUFFS BY MOUTH, EVERY 4 HOURS BUT SOMETIMES NEED IT MORE THREE TIMES) (FROM MANY
  2. ALBUTEROL [Suspect]
     Active Substance: ALBUTEROL
     Dosage: 180 MICROGRAM (TWO PUFFS BY MOUTH, EVERY 4 HOURS BUT SOMETIMES NEED IT MORE THREE TIMES)
     Dates: start: 202511
  3. ALBUTEROL [Suspect]
     Active Substance: ALBUTEROL
     Dosage: 180 MICROGRAM (TWO PUFFS BY MOUTH, EVERY 4 HOURS BUT SOMETIMES NEED IT MORE THREE TIMES)
     Dates: start: 202511

REACTIONS (5)
  - Dyspnoea [Unknown]
  - Device malfunction [Unknown]
  - Device delivery system issue [Unknown]
  - Drug dose omission by device [Unknown]
  - Product quality issue [Unknown]

NARRATIVE: CASE EVENT DATE: 20251101
